FAERS Safety Report 7129148-8 (Version None)
Quarter: 2010Q4

REPORT INFORMATION
  Report Type: 
  Country: None (occurrence: None)
  Receive Date: 20101130
  Receipt Date: 20101122
  Transmission Date: 20110411
  Serious: Yes (Other)
  Sender: FDA-Public Use
  Company Number: US-SANOFI-AVENTIS-2010SA071305

PATIENT
  Age: 66 Year
  Sex: Male

DRUGS (9)
  1. MULTAQ [Suspect]
     Route: 048
     Dates: start: 20101115, end: 20101122
  2. LIPITOR [Concomitant]
  3. ASPIRIN [Concomitant]
  4. MULTI-VITAMINS [Concomitant]
  5. CALCIUM WITH VITAMIN D [Concomitant]
  6. ALL OTHER THERAPEUTIC PRODUCTS [Concomitant]
  7. COENZYME Q10 [Concomitant]
  8. CHROMIUM CHLORIDE [Concomitant]
  9. ALL OTHER THERAPEUTIC PRODUCTS [Concomitant]

REACTIONS (2)
  - ATRIAL FIBRILLATION [None]
  - ATRIAL FLUTTER [None]
